FAERS Safety Report 6841932-4 (Version None)
Quarter: 2010Q3

REPORT INFORMATION
  Report Type: 
  Country: None (occurrence: None)
  Receive Date: 20100714
  Receipt Date: 20070718
  Transmission Date: 20110219
  Serious: Yes (Other)
  Sender: FDA-Public Use
  Company Number: US-PFIZER INC-2007060486

PATIENT
  Sex: Female
  Weight: 86.363 kg

DRUGS (18)
  1. CHANTIX [Suspect]
     Indication: SMOKING CESSATION THERAPY
     Dosage: EVERY DAY
     Dates: start: 20070713
  2. NEXIUM [Concomitant]
  3. STELAZINE [Concomitant]
  4. GABAPENTIN [Concomitant]
  5. LISINOPRIL [Concomitant]
  6. MEDROXYPROGESTERONE [Concomitant]
  7. PREMARIN [Concomitant]
  8. VERAPAMIL [Concomitant]
  9. NAPROXEN [Concomitant]
  10. SERTRALINE HCL [Concomitant]
  11. MULTI-VITAMINS [Concomitant]
  12. HYDROCODONE [Concomitant]
  13. SPIRIVA [Concomitant]
     Indication: CHRONIC OBSTRUCTIVE PULMONARY DISEASE
  14. SPIRIVA [Concomitant]
     Indication: ARTHRITIS
  15. ALBUTEROL [Concomitant]
  16. ADVAIR DISKUS 100/50 [Concomitant]
  17. POTASSIUM CHLORIDE [Concomitant]
  18. DIURETICS [Concomitant]

REACTIONS (5)
  - CATARACT [None]
  - CONSTIPATION [None]
  - DIARRHOEA [None]
  - HEADACHE [None]
  - NAUSEA [None]
